FAERS Safety Report 9434498 (Version 1)
Quarter: 2013Q3

REPORT INFORMATION
  Report Type: Spontaneous
  Country: US (occurrence: None)
  Receive Date: 20130731
  Receipt Date: 20130731
  Transmission Date: 20140515
  Serious: Yes (Hospitalization)
  Sender: FDA-Public Use
  Company Number: None

PATIENT
  Age: 54 Year
  Sex: Male
  Weight: 99.7 kg

DRUGS (1)
  1. VARENICLINE [Suspect]
     Indication: SMOKING CESSATION THERAPY
     Dosage: 1 MG  BID
     Dates: start: 20130227, end: 20130518

REACTIONS (6)
  - Confusional state [None]
  - Psychiatric symptom [None]
  - Abnormal behaviour [None]
  - Hallucination, auditory [None]
  - Flat affect [None]
  - Depression [None]
